FAERS Safety Report 8925103 (Version 3)
Quarter: 2012Q4

REPORT INFORMATION
  Report Type: 
  Country: US (occurrence: US)
  Receive Date: 20121126
  Receipt Date: 20121221
  Transmission Date: 20130627
  Serious: Yes (Death, Hospitalization)
  Sender: FDA-Public Use
  Company Number: US-ACTELION-A-NJ2012-71092

PATIENT
  Age: 32 Year
  Sex: Male

DRUGS (7)
  1. TRACLEER [Suspect]
     Indication: PULMONARY ARTERIAL HYPERTENSION
     Dosage: UNK
     Route: 048
     Dates: start: 201008
  2. ASPIRIN [Concomitant]
  3. SILDENAFIL [Concomitant]
  4. COUMADIN [Concomitant]
  5. REMODULIN [Concomitant]
  6. LASIX [Concomitant]
  7. SPIRONOLACTONE [Concomitant]

REACTIONS (11)
  - Septic shock [Fatal]
  - Multi-organ failure [Fatal]
  - Pulmonary arterial hypertension [Not Recovered/Not Resolved]
  - Ventricular dysfunction [Not Recovered/Not Resolved]
  - Heart rate decreased [Not Recovered/Not Resolved]
  - Pericardial effusion [Not Recovered/Not Resolved]
  - Ascites [Not Recovered/Not Resolved]
  - Abdominal distension [Not Recovered/Not Resolved]
  - Asthenia [Not Recovered/Not Resolved]
  - Back pain [Not Recovered/Not Resolved]
  - Sepsis [Unknown]
